FAERS Safety Report 6924827-7 (Version None)
Quarter: 2010Q3

REPORT INFORMATION
  Report Type: 
  Country: None (occurrence: None)
  Receive Date: 20100816
  Receipt Date: 20100809
  Transmission Date: 20110219
  Serious: Yes (Hospitalization)
  Sender: FDA-Public Use
  Company Number: US-ASTRAZENECA-2010SE32795

PATIENT
  Sex: Female
  Weight: 72.6 kg

DRUGS (3)
  1. CRESTOR [Suspect]
     Indication: BLOOD CHOLESTEROL INCREASED
     Route: 048
     Dates: start: 20090701
  2. METOPROLOL [Concomitant]
     Indication: HYPERTENSION
  3. PLAVIX [Concomitant]

REACTIONS (1)
  - FOOT FRACTURE [None]
